FAERS Safety Report 6206280-4 (Version None)
Quarter: 2009Q2

REPORT INFORMATION
  Report Type: 
  Country: None (occurrence: None)
  Receive Date: 20090528
  Receipt Date: 20090519
  Transmission Date: 20091009
  Serious: Yes (Other)
  Sender: FDA-Public Use
  Company Number: JP-ROCHE-634409

PATIENT
  Age: 54 Year
  Sex: Female

DRUGS (1)
  1. ROCEPHIN [Suspect]
     Indication: DRUG USE FOR UNKNOWN INDICATION
     Dosage: ROUTE REPORTED AS INTRAVENOUS (NOT OTHERWISE SPECIFIED)
     Route: 042
     Dates: start: 20060601, end: 20060601

REACTIONS (2)
  - SMALL INTESTINAL PERFORATION [None]
  - TOXIC EPIDERMAL NECROLYSIS [None]
